FAERS Safety Report 5299886-0 (Version None)
Quarter: 2007Q2

REPORT INFORMATION
  Report Type: 
  Country: None (occurrence: None)
  Receive Date: 20070410
  Receipt Date: 20070402
  Transmission Date: 20071010
  Serious: Yes (Other)
  Sender: FDA-Public Use
  Company Number: L07-ITA-01434-01

PATIENT
  Age: 30 Year
  Sex: Male

DRUGS (10)
  1. CITALOPRAM HYDROBROMIDE [Suspect]
     Indication: SCHIZOAFFECTIVE DISORDER
     Dosage: 30 MG QD
  2. ARIPIPRAZOLE [Suspect]
     Indication: BIPOLAR DISORDER
     Dosage: 15 MG QD
  3. ARIPIPRAZOLE [Suspect]
     Indication: SCHIZOAFFECTIVE DISORDER
     Dosage: 15 MG QD
  4. ARIPIPRAZOLE [Suspect]
     Indication: BIPOLAR DISORDER
     Dosage: 30 MG QD
  5. ARIPIPRAZOLE [Suspect]
     Indication: SCHIZOAFFECTIVE DISORDER
     Dosage: 30 MG QD
  6. ARIPIPRAZOLE [Suspect]
     Indication: BIPOLAR DISORDER
     Dosage: 7.5 MG QD
  7. ARIPIPRAZOLE [Suspect]
     Indication: SCHIZOAFFECTIVE DISORDER
     Dosage: 7.5 MG QD
  8. ARIPIPRAZOLE [Suspect]
     Indication: SCHIZOAFFECTIVE DISORDER
     Dosage: 5 MG QD
  9. LITHIUM CARBONATE [Concomitant]
  10. RISPERDAL [Concomitant]

REACTIONS (21)
  - AGGRESSION [None]
  - AGITATION [None]
  - AKATHISIA [None]
  - AKINESIA [None]
  - ANHEDONIA [None]
  - APATHY [None]
  - APHASIA [None]
  - DRUG INEFFECTIVE [None]
  - EJACULATION FAILURE [None]
  - FLAT AFFECT [None]
  - HALLUCINATION, AUDITORY [None]
  - HALLUCINATION, OLFACTORY [None]
  - HOMICIDAL IDEATION [None]
  - HOSTILITY [None]
  - IDEAS OF REFERENCE [None]
  - IRRITABILITY [None]
  - NERVOUSNESS [None]
  - PERSECUTORY DELUSION [None]
  - PSYCHOTIC DISORDER [None]
  - SUICIDAL BEHAVIOUR [None]
  - WEIGHT INCREASED [None]
